FAERS Safety Report 18485531 (Version 1)
Quarter: 2020Q4

REPORT INFORMATION
  Report Type: Spontaneous
  Country: US (occurrence: US)
  Receive Date: 20201110
  Receipt Date: 20201110
  Transmission Date: 20210114
  Serious: Yes (Hospitalization)
  Sender: FDA-Public Use
  Company Number: US-B.I. PHARMACEUTICALS,INC./RIDGEFIELD-2020-BI-059447

PATIENT
  Age: 69 Year
  Sex: Male

DRUGS (1)
  1. JARDIANCE [Suspect]
     Active Substance: EMPAGLIFLOZIN
     Indication: TYPE 2 DIABETES MELLITUS
     Dosage: UNKNOWN
     Dates: end: 2020

REACTIONS (4)
  - Dysuria [Recovered/Resolved]
  - Rash [Recovered/Resolved]
  - COVID-19 [Recovered/Resolved]
  - Urinary tract infection fungal [Recovered/Resolved]

NARRATIVE: CASE EVENT DATE: 2020
